FAERS Safety Report 4304277-2 (Version None)
Quarter: 2004Q1

REPORT INFORMATION
  Report Type: 
  Country: None (occurrence: None)
  Receive Date: 20040224
  Receipt Date: 20040213
  Transmission Date: 20041129
  Serious: Yes (Death)
  Sender: FDA-Public Use
  Company Number: USA-2003-0007716

PATIENT
  Age: 42 Year
  Sex: Female
  Weight: 63.5 kg

DRUGS (6)
  1. OXYCODONE HDYROCHLORIDE (SIMILAR TO NDA 20-553)(OXYCODONE HYDROCHLORID [Suspect]
  2. HYDROCODONE BITARTRATE [Suspect]
  3. PHENTERMINE [Suspect]
  4. CAFFEINE (CAFFEINE) [Suspect]
  5. CITALOPRAM [Concomitant]
  6. BUPROPION HCL [Suspect]

REACTIONS (19)
  - ACUTE PULMONARY OEDEMA [None]
  - ADENOMYOSIS [None]
  - ALCOHOLISM [None]
  - BETA HAEMOLYTIC STREPTOCOCCAL INFECTION [None]
  - BULIMIA NERVOSA [None]
  - CARDIO-RESPIRATORY ARREST [None]
  - COAGULOPATHY [None]
  - COMA [None]
  - CONTUSION [None]
  - CULTURE POSITIVE [None]
  - FALL [None]
  - GASTRIC HAEMORRHAGE [None]
  - HAEMATEMESIS [None]
  - HAND FRACTURE [None]
  - HEPATIC STEATOSIS [None]
  - HEPATOMEGALY [None]
  - LEIOMYOMA [None]
  - LUNG DISORDER [None]
  - OEDEMA PERIPHERAL [None]
